FAERS Safety Report 15598891 (Version 2)
Quarter: 2018Q4

REPORT INFORMATION
  Report Type: Spontaneous
  Country: US (occurrence: US)
  Receive Date: 20181108
  Receipt Date: 20181109
  Transmission Date: 20190205
  Serious: No
  Sender: FDA-Public Use
  Company Number: US-PFIZER INC-2018452212

PATIENT
  Age: 54 Year
  Sex: Male

DRUGS (1)
  1. LYRICA [Suspect]
     Active Substance: PREGABALIN
     Indication: NEUROPATHY PERIPHERAL
     Dosage: 75MG, TWICE DAILY (75MG IN MORNING AND 75MG AT NIGHT)

REACTIONS (3)
  - Ulcer [Recovering/Resolving]
  - Glossodynia [Recovering/Resolving]
  - Feeding disorder [Unknown]
